FAERS Safety Report 12906697 (Version 1)
Quarter: 2016Q4

REPORT INFORMATION
  Report Type: Spontaneous
  Country: US (occurrence: US)
  Receive Date: 20161101
  Receipt Date: 20161101
  Transmission Date: 20170207
  Serious: Yes (Life-Threatening, Hospitalization)
  Sender: FDA-Public Use
  Company Number: None

PATIENT
  Age: 41 Year
  Sex: Female
  Weight: 75 kg

DRUGS (2)
  1. OXYMORPHONE [Concomitant]
     Active Substance: OXYMORPHONE
  2. VENLAFAXINE [Suspect]
     Active Substance: VENLAFAXINE HYDROCHLORIDE
     Indication: DEPRESSION
     Route: 048

REACTIONS (4)
  - Seizure like phenomena [None]
  - Dyskinesia [None]
  - Serotonin syndrome [None]
  - Tremor [None]

NARRATIVE: CASE EVENT DATE: 20160820
